FAERS Safety Report 7737176-4 (Version None)
Quarter: 2011Q3

REPORT INFORMATION
  Report Type: 
  Country: None (occurrence: None)
  Receive Date: 20110908
  Receipt Date: 20110901
  Transmission Date: 20111222
  Serious: Yes (Death, Other)
  Sender: FDA-Public Use
  Company Number: BR-ROCHE-800346

PATIENT
  Age: 51 Year
  Sex: Female

DRUGS (1)
  1. XELODA [Suspect]
     Dosage: DOSE, FORM, FREQUENCY NOT REPORTED.
     Route: 065

REACTIONS (2)
  - DISEASE PROGRESSION [None]
  - CEREBROVASCULAR ACCIDENT [None]
